FAERS Safety Report 17346091 (Version 2)
Quarter: 2020Q2

REPORT INFORMATION
  Report Type: Spontaneous
  Country: CO (occurrence: CO)
  Receive Date: 20200129
  Receipt Date: 20200617
  Transmission Date: 20200713
  Serious: Yes (Other)
  Sender: FDA-Public Use
  Company Number: CO-BIOMARINAP-CO-2017-115992

PATIENT
  Age: 18 Year
  Weight: 23 kg

DRUGS (1)
  1. VIMIZIM [Suspect]
     Active Substance: ELOSULFASE ALFA
     Indication: MUCOPOLYSACCHARIDOSIS IV
     Dosage: UNK
     Route: 065
     Dates: start: 20141029, end: 2017

REACTIONS (4)
  - Corneal opacity [Unknown]
  - General physical health deterioration [Unknown]
  - Scoliosis [Unknown]
  - Deafness [Unknown]
